FAERS Safety Report 7578670-9 (Version None)
Quarter: 2011Q2

REPORT INFORMATION
  Report Type: 
  Country: None (occurrence: None)
  Receive Date: 20110628
  Receipt Date: 20110627
  Transmission Date: 20111010
  Serious: Yes (Hospitalization)
  Sender: FDA-Public Use
  Company Number: PHHO2010US05751

PATIENT
  Sex: Male
  Weight: 109.1 kg

DRUGS (7)
  1. RAD001C [Suspect]
     Indication: HEPATIC NEOPLASM MALIGNANT
     Dosage: 2.5 MG, QD
     Route: 048
     Dates: start: 20100208, end: 20100408
  2. PLACEBO [Suspect]
     Dosage: NO TREATMENT
  3. DOCUSATE SODIUM [Concomitant]
     Indication: CONSTIPATION
  4. OXYCONTIN [Concomitant]
     Indication: PAIN
  5. BLINDED NO TREATMENT RECEIVED [Suspect]
     Dosage: NO TREATMENT
  6. COMPARATOR SORAFENIB [Suspect]
     Indication: HEPATIC NEOPLASM MALIGNANT
     Dosage: 400 MG, BID
     Route: 048
     Dates: start: 20100208, end: 20100408
  7. AFINITOR [Suspect]
     Dosage: NO TREATMENT

REACTIONS (6)
  - VOMITING [None]
  - INTESTINAL ISCHAEMIA [None]
  - ABDOMINAL PAIN [None]
  - INTESTINAL DILATATION [None]
  - SMALL INTESTINAL OBSTRUCTION [None]
  - ENTERITIS [None]
